FAERS Safety Report 6239723-0 (Version None)
Quarter: 2009Q2

REPORT INFORMATION
  Report Type: 
  Country: None (occurrence: None)
  Receive Date: 20090619
  Receipt Date: 20090527
  Transmission Date: 20091009
  Serious: Yes (Other)
  Sender: FDA-Public Use
  Company Number: 000996

PATIENT
  Sex: Male
  Weight: 84 kg

DRUGS (4)
  1. VIMPAT [Suspect]
     Indication: EPILEPSY
     Dosage: (150 MG AND 100 MG ORAL), (50 MG BID, DOSE REDUCED ORAL)
     Route: 048
     Dates: start: 20090320, end: 20090515
  2. CARBAMAZEPINE [Concomitant]
  3. VIGABATRIN [Concomitant]
  4. PHENYTOIN [Concomitant]

REACTIONS (3)
  - FAECALOMA [None]
  - NAUSEA [None]
  - VOMITING [None]
